FAERS Safety Report 9132695 (Version 5)
Quarter: 2013Q2

REPORT INFORMATION
  Report Type: Spontaneous
  Country: FR (occurrence: FR)
  Receive Date: 20130301
  Receipt Date: 20130606
  Transmission Date: 20140414
  Serious: Yes (Death, Hospitalization)
  Sender: FDA-Public Use
  Company Number: FR-ROCHE-1194993

PATIENT
  Age: 77 Year
  Sex: Male

DRUGS (2)
  1. MABTHERA [Suspect]
     Indication: CHRONIC LYMPHOCYTIC LEUKAEMIA
     Dosage: LAST DOSE PRIOR TO SAE ON 08/JAN/2013
     Route: 042
     Dates: start: 20120821
  2. BENDAMUSTINE [Concomitant]

REACTIONS (1)
  - Progressive multifocal leukoencephalopathy [Fatal]
